FAERS Safety Report 9028777 (Version 1)
Quarter: 2013Q1

REPORT INFORMATION
  Report Type: Spontaneous
  Country: US (occurrence: US)
  Receive Date: 20130124
  Receipt Date: 20130124
  Transmission Date: 20140127
  Serious: No
  Sender: FDA-Public Use
  Company Number: US-BAUSCH-2012BL001854

PATIENT
  Age: 55 Year
  Sex: Male

DRUGS (2)
  1. ALAWAY [Suspect]
     Indication: EYE ALLERGY
     Route: 047
     Dates: start: 20120309, end: 20120310
  2. OPCON-A [Concomitant]
     Indication: SEASONAL ALLERGY

REACTIONS (1)
  - Drug ineffective [None]
